FAERS Safety Report 4664322-1 (Version None)
Quarter: 2005Q2

REPORT INFORMATION
  Report Type: 
  Country: None (occurrence: None)
  Receive Date: 20050516
  Receipt Date: 20050516
  Transmission Date: 20051028
  Serious: Yes (Life-Threatening)
  Sender: FDA-Public Use
  Company Number: None

PATIENT
  Sex: Female

DRUGS (2)
  1. GEMCITABINE [Suspect]
     Indication: CHEMOTHERAPY
     Dosage: 1750MG
     Dates: start: 20050427
  2. CARBOPLATIN [Suspect]
     Dosage: 569MG
     Dates: start: 20050427

REACTIONS (2)
  - DRUG TOXICITY [None]
  - PLATELET COUNT DECREASED [None]
